FAERS Safety Report 7414330-2 (Version None)
Quarter: 2011Q2

REPORT INFORMATION
  Report Type: 
  Country: None (occurrence: None)
  Receive Date: 20110414
  Receipt Date: 20110330
  Transmission Date: 20111010
  Serious: Yes (Hospitalization)
  Sender: FDA-Public Use
  Company Number: IS-JNJFOC-20110400837

PATIENT
  Sex: Male

DRUGS (4)
  1. REMICADE [Suspect]
     Indication: DRUG EXPOSURE DURING PREGNANCY
  2. VITAMIN TAB [Concomitant]
  3. PARACETAMOL [Concomitant]
  4. RHINOCORT [Concomitant]

REACTIONS (1)
  - CONVULSION NEONATAL [None]
